FAERS Safety Report 20885340 (Version 3)
Quarter: 2022Q4

REPORT INFORMATION
  Report Type: Spontaneous
  Country: US (occurrence: None)
  Receive Date: 20220527
  Receipt Date: 20221102
  Transmission Date: 20230113
  Serious: Yes (Hospitalization, Other)
  Sender: FDA-Public Use
  Company Number: 2022A194778

PATIENT
  Age: 19073 Day
  Sex: Female

DRUGS (38)
  1. NEXIUM [Suspect]
     Active Substance: ESOMEPRAZOLE MAGNESIUM
     Indication: Gastrooesophageal reflux disease
     Route: 048
     Dates: start: 20061122, end: 20131003
  2. NEXIUM [Suspect]
     Active Substance: ESOMEPRAZOLE MAGNESIUM
     Indication: Gastrooesophageal reflux disease
     Route: 048
     Dates: start: 20071027, end: 20131009
  3. PREVACID [Suspect]
     Active Substance: LANSOPRAZOLE
     Indication: Gastrooesophageal reflux disease
     Route: 065
     Dates: start: 20061122, end: 20131003
  4. PREVACID [Suspect]
     Active Substance: LANSOPRAZOLE
     Indication: Gastrooesophageal reflux disease
     Route: 065
     Dates: start: 20061122, end: 20071025
  5. TOPROL XL [Concomitant]
     Active Substance: METOPROLOL SUCCINATE
     Indication: Hypertension
     Dates: start: 2006, end: 2008
  6. JANUVIA [Concomitant]
     Active Substance: SITAGLIPTIN PHOSPHATE
     Indication: Diabetes mellitus
     Dates: start: 2007, end: 2012
  7. NOVOLIN NOS [Concomitant]
     Active Substance: INSULIN HUMAN
     Indication: Diabetes mellitus
     Dates: start: 2007, end: 2011
  8. BENICAR [Concomitant]
     Active Substance: OLMESARTAN MEDOXOMIL
     Indication: Hypertension
     Dates: start: 2008, end: 2011
  9. AMLODIPINE [Concomitant]
     Active Substance: AMLODIPINE BESYLATE
     Indication: Hypertension
     Dates: start: 2010, end: 2015
  10. LISINOPRIL [Concomitant]
     Active Substance: LISINOPRIL
     Indication: Hypertension
     Dates: start: 2012, end: 2015
  11. LIPITOR [Concomitant]
     Active Substance: ATORVASTATIN CALCIUM
     Indication: Blood cholesterol increased
     Dates: start: 2010, end: 2011
  12. ATORVASTATIN [Concomitant]
     Active Substance: ATORVASTATIN
     Indication: Blood cholesterol increased
     Dates: start: 2011, end: 2015
  13. SULFAMETHOXAZOLE SODIUM/AMINOCAPROIC ACID/DIPOTASSIUM GLYCYRRHIZATE [Concomitant]
     Dates: start: 2011, end: 2015
  14. TRAMADOL [Concomitant]
     Active Substance: TRAMADOL
     Dates: start: 2011, end: 2015
  15. DOXAZOSIN [Concomitant]
     Active Substance: DOXAZOSIN MESYLATE
     Dates: start: 2011, end: 2015
  16. HUMALOG [Concomitant]
     Active Substance: INSULIN LISPRO
     Dates: start: 2011, end: 2015
  17. FUROSEMIDE [Concomitant]
     Active Substance: FUROSEMIDE
     Dates: start: 2011, end: 2015
  18. GLYBURIDE [Concomitant]
     Active Substance: GLYBURIDE
     Dates: start: 2011, end: 2015
  19. OXYCODONE [Concomitant]
     Active Substance: OXYCODONE
     Dates: start: 2011, end: 2015
  20. FLUCONAZOLE [Concomitant]
     Active Substance: FLUCONAZOLE
     Dates: start: 2011, end: 2015
  21. HYDROCODONE [Concomitant]
     Active Substance: HYDROCODONE
     Dates: start: 2011, end: 2015
  22. GENTAMICIN [Concomitant]
     Active Substance: GENTAMICIN
     Dates: start: 2011, end: 2015
  23. METOPROLOL [Concomitant]
     Active Substance: METOPROLOL
     Dates: start: 2011, end: 2015
  24. ACTOS [Concomitant]
     Active Substance: PIOGLITAZONE HYDROCHLORIDE
     Dates: start: 2011, end: 2015
  25. ERYTHROMYCIN [Concomitant]
     Active Substance: ERYTHROMYCIN
     Dates: start: 2011, end: 2015
  26. ZYVOX [Concomitant]
     Active Substance: LINEZOLID
     Dates: start: 2011, end: 2015
  27. CLARINEX [Concomitant]
     Active Substance: DESLORATADINE
     Dates: start: 2011, end: 2015
  28. GABAPENTIN [Concomitant]
     Active Substance: GABAPENTIN
     Dates: start: 2011, end: 2015
  29. METFORMIN [Concomitant]
     Active Substance: METFORMIN HYDROCHLORIDE
     Dates: start: 2011, end: 2015
  30. AZITHROMYCIN [Concomitant]
     Active Substance: AZITHROMYCIN
     Dates: start: 2011, end: 2015
  31. VENTOLIN HFA [Concomitant]
     Active Substance: ALBUTEROL SULFATE
     Dates: start: 2011, end: 2015
  32. ISOSORBIDE [Concomitant]
     Active Substance: ISOSORBIDE
     Dates: start: 2011, end: 2015
  33. TEKTURNA [Concomitant]
     Active Substance: ALISKIREN HEMIFUMARATE
     Dates: start: 2011, end: 2015
  34. SULFACETAMIDE/MAFENIDE/NAPHAZOLINE/ANTAZOLINE [Concomitant]
     Dates: start: 2011, end: 2015
  35. AMMONIUM CHLORIDE\DEXTROMETHORPHAN\SODIUM CITRATE [Concomitant]
     Active Substance: AMMONIUM CHLORIDE\DEXTROMETHORPHAN\SODIUM CITRATE
     Dates: start: 2011, end: 2015
  36. LORATADINE [Concomitant]
     Active Substance: LORATADINE
     Dates: start: 2011, end: 2015
  37. PROMETHAZINE [Concomitant]
     Active Substance: PROMETHAZINE HYDROCHLORIDE
     Dates: start: 2011, end: 2015
  38. ALBUTEROL [Concomitant]
     Active Substance: ALBUTEROL
     Dates: start: 2011, end: 2015

REACTIONS (2)
  - Acute kidney injury [Unknown]
  - Chronic kidney disease [Unknown]

NARRATIVE: CASE EVENT DATE: 20141105
